FAERS Safety Report 7755687-2 (Version None)
Quarter: 2011Q3

REPORT INFORMATION
  Report Type: 
  Country: None (occurrence: None)
  Receive Date: 20110914
  Receipt Date: 20110830
  Transmission Date: 20111222
  Serious: Yes (Other)
  Sender: FDA-Public Use
  Company Number: 1000023642

PATIENT
  Age: 73 Year
  Sex: Female
  Weight: 41 kg

DRUGS (8)
  1. BERODUAL (IPRATROPIUM, FORMOTEROL) [Concomitant]
  2. RAMIPRIL [Concomitant]
  3. SPIRIVA [Concomitant]
  4. SYMBICORT [Concomitant]
  5. PRIMODON (PRIMIDONE) [Concomitant]
  6. ROFLUMILAST (ROFLUMILAST) (TABLETS) [Suspect]
     Indication: CHRONIC OBSTRUCTIVE PULMONARY DISEASE
     Dosage: 500 MCG (500 MCG,1 IN 1 D),ORAL
     Route: 048
     Dates: start: 20110719
  7. ASPIRIN [Concomitant]
  8. PREDNISOLONE [Concomitant]

REACTIONS (3)
  - GENERAL PHYSICAL HEALTH DETERIORATION [None]
  - CHILLS [None]
  - VISUAL IMPAIRMENT [None]
